FAERS Safety Report 23298384 (Version 1)
Quarter: 2023Q4

REPORT INFORMATION
  Report Type: Report from Study
  Country: US (occurrence: US)
  Receive Date: 20231214
  Receipt Date: 20231214
  Transmission Date: 20240110
  Serious: No
  Sender: FDA-Public Use
  Company Number: US-AstraZeneca-CH-00526863A

PATIENT

DRUGS (1)
  1. STRENSIQ [Suspect]
     Active Substance: ASFOTASE ALFA
     Indication: Product used for unknown indication
     Dosage: 140 MILLIGRAM
     Route: 058
     Dates: start: 20231210

REACTIONS (2)
  - Injection site pain [Unknown]
  - Medication error [Unknown]
